FAERS Safety Report 6240679-5 (Version None)
Quarter: 2009Q2

REPORT INFORMATION
  Report Type: 
  Country: None (occurrence: None)
  Receive Date: 20090623
  Receipt Date: 20090108
  Transmission Date: 20091009
  Serious: Yes (Other)
  Sender: FDA-Public Use
  Company Number: US-ASTRAZENECA-2009UW00709

PATIENT
  Age: 7 Month
  Sex: Male

DRUGS (3)
  1. PULMICORT RESPULES [Suspect]
     Route: 055
  2. PREDNISOLONE [Concomitant]
  3. ALBUTEROL [Concomitant]

REACTIONS (6)
  - COUGH [None]
  - OTITIS MEDIA [None]
  - RESPIRATORY TRACT INFECTION [None]
  - RHINORRHOEA [None]
  - SINUSITIS [None]
  - VIRAL INFECTION [None]
